FAERS Safety Report 25660987 (Version 1)
Quarter: 2025Q3

REPORT INFORMATION
  Report Type: Spontaneous
  Country: US (occurrence: US)
  Receive Date: 20250808
  Receipt Date: 20250808
  Transmission Date: 20251021
  Serious: Yes (Hospitalization, Other)
  Sender: MERCK SHARP & DOHME LLC
  Company Number: US-009507513-2314835

PATIENT
  Age: 70 Year
  Sex: Female

DRUGS (2)
  1. PEMBROLIZUMAB [Suspect]
     Active Substance: PEMBROLIZUMAB
     Indication: Endometrial cancer metastatic
  2. LENVATINIB [Concomitant]
     Active Substance: LENVATINIB
     Indication: Endometrial cancer metastatic
     Route: 048

REACTIONS (2)
  - Immune-mediated encephalopathy [Not Recovered/Not Resolved]
  - Inappropriate schedule of product administration [Unknown]
